FAERS Safety Report 9426874 (Version 1)
Quarter: 2013Q3

REPORT INFORMATION
  Report Type: Spontaneous
  Country: US (occurrence: None)
  Receive Date: 20130729
  Receipt Date: 20130729
  Transmission Date: 20140515
  Serious: Yes (Hospitalization, Other)
  Sender: FDA-Public Use
  Company Number: None

PATIENT
  Age: 47 Year
  Sex: Female
  Weight: 98.88 kg

DRUGS (1)
  1. HCG [Suspect]
     Indication: WEIGHT CONTROL
     Dates: start: 20110513, end: 20110518

REACTIONS (2)
  - Hysterectomy [None]
  - Oophorectomy [None]
